FAERS Safety Report 8316468-4 (Version None)
Quarter: 2012Q2

REPORT INFORMATION
  Report Type: 
  Country: None (occurrence: None)
  Receive Date: 20120427
  Receipt Date: 20120416
  Transmission Date: 20120825
  Serious: Yes (Hospitalization, Other)
  Sender: FDA-Public Use
  Company Number: PHHY2009TW13026

PATIENT
  Sex: Male
  Weight: 70 kg

DRUGS (7)
  1. CALCIUM GLUCONATE [Concomitant]
  2. SODIUM POLYSTYRENE SULFONATE [Concomitant]
  3. HERBAL EXTRACTS NOS [Concomitant]
     Indication: HYPERTENSION
     Dosage: UNK UKN, UNK
     Dates: start: 20080101
  4. HERBAL EXTRACTS NOS [Concomitant]
     Indication: DIABETES MELLITUS
  5. DIOVAN [Suspect]
     Indication: HYPERTENSION
     Dosage: 160 MG
     Route: 048
     Dates: start: 20090311
  6. DIOVAN [Suspect]
     Dosage: 160 MG, BID
     Route: 048
     Dates: start: 20090407
  7. SODIUM BICARBONATE [Concomitant]

REACTIONS (8)
  - DIARRHOEA [None]
  - WHITE BLOOD CELL COUNT INCREASED [None]
  - HYPOVOLAEMIC SHOCK [None]
  - BLOOD PRESSURE INADEQUATELY CONTROLLED [None]
  - BLOOD GLUCOSE INCREASED [None]
  - VOMITING [None]
  - HYPERKALAEMIA [None]
  - NAUSEA [None]
